FAERS Safety Report 5837272-2 (Version None)
Quarter: 2008Q3

REPORT INFORMATION
  Report Type: 
  Country: None (occurrence: None)
  Receive Date: 20080807
  Receipt Date: 20080724
  Transmission Date: 20090109
  Serious: Yes (Other)
  Sender: FDA-Public Use
  Company Number: GB-PFIZER INC-2005094688

PATIENT
  Age: 22 Year
  Sex: Male

DRUGS (3)
  1. LYRICA [Suspect]
     Indication: TRIGEMINAL NEURALGIA
     Route: 048
     Dates: start: 20050620, end: 20050622
  2. AMITRIPTYLINE HCL [Concomitant]
     Indication: PAIN IN JAW
     Route: 048
  3. TRAMADOL HCL [Concomitant]
     Indication: PAIN IN JAW
     Route: 065
     Dates: start: 20050118, end: 20050301

REACTIONS (2)
  - AGGRESSION [None]
  - AGITATION [None]
